FAERS Safety Report 19819143 (Version 1)
Quarter: 2021Q3

REPORT INFORMATION
  Report Type: Spontaneous
  Country: US (occurrence: US)
  Receive Date: 20210913
  Receipt Date: 20210913
  Transmission Date: 20211014
  Serious: Yes (Other)
  Sender: FDA-Public Use
  Company Number: US-ABBVIE-21K-163-4076092-00

PATIENT
  Sex: Female

DRUGS (1)
  1. LEVOTHYROXINE. [Suspect]
     Active Substance: LEVOTHYROXINE
     Indication: PRODUCT USED FOR UNKNOWN INDICATION
     Dosage: MANUFACTURER: UNKNOWN
     Route: 048

REACTIONS (3)
  - Medullary thyroid cancer [Unknown]
  - Tri-iodothyronine abnormal [Unknown]
  - Thyroxine abnormal [Unknown]
